FAERS Safety Report 17683826 (Version 1)
Quarter: 2020Q2

REPORT INFORMATION
  Report Type: Spontaneous
  Country: US (occurrence: US)
  Receive Date: 20200420
  Receipt Date: 20200420
  Transmission Date: 20200714
  Serious: Yes (Other)
  Sender: FDA-Public Use
  Company Number: US-BAYER-2020-063191

PATIENT
  Sex: Male

DRUGS (1)
  1. MIRALAX [Suspect]
     Active Substance: POLYETHYLENE GLYCOL 3350
     Indication: GASTROINTESTINAL DISORDER
     Dosage: 4 DF, QD
     Route: 048

REACTIONS (6)
  - Intestinal obstruction [None]
  - Abdominal pain upper [None]
  - Inappropriate schedule of product administration [Unknown]
  - Abdominal distension [Unknown]
  - Dehydration [Unknown]
  - Pain in extremity [None]

NARRATIVE: CASE EVENT DATE: 20200409
